FAERS Safety Report 5099909-8 (Version None)
Quarter: 2006Q3

REPORT INFORMATION
  Report Type: 
  Country: None (occurrence: None)
  Receive Date: 20060908
  Receipt Date: 20060817
  Transmission Date: 20061208
  Serious: Yes (Life-Threatening, Hospitalization)
  Sender: FDA-Public Use
  Company Number: CHWYE731318AUG06

PATIENT
  Age: 43 Year
  Sex: Male

DRUGS (6)
  1. ENBREL [Suspect]
     Indication: SPONDYLOARTHROPATHY
     Dosage: UNKNOWN
     Route: 058
     Dates: start: 20060815, end: 20060815
  2. ENBREL [Suspect]
     Route: 058
     Dates: start: 20060815, end: 20060815
  3. ESCITALOPRAM OXALATE [Suspect]
     Dosage: UNKNOWN
     Dates: start: 20060815, end: 20060815
  4. VOLTAREN [Suspect]
     Dosage: UNKNOWN
     Dates: start: 20060815, end: 20060815
  5. UNSPECIFIED BENZODIAZEPINE [Suspect]
     Dosage: UNKNOWN
     Dates: start: 20060815, end: 20060815
  6. TRAMADOL HCL [Suspect]
     Dosage: UNKNOWN
     Dates: start: 20060815, end: 20060815

REACTIONS (5)
  - ABDOMINAL PAIN UPPER [None]
  - INTENTIONAL OVERDOSE [None]
  - MULTIPLE DRUG OVERDOSE INTENTIONAL [None]
  - PNEUMONIA ASPIRATION [None]
  - SUICIDE ATTEMPT [None]
